FAERS Safety Report 24737324 (Version 2)
Quarter: 2024Q4

REPORT INFORMATION
  Report Type: Spontaneous
  Country: US (occurrence: US)
  Receive Date: 20241216
  Receipt Date: 20241219
  Transmission Date: 20250115
  Serious: Yes (Other)
  Sender: PFIZER
  Company Number: US-MLMSERVICE-20241202-PI276173-00082-1

PATIENT
  Age: 4 Year
  Sex: Male

DRUGS (5)
  1. CARBOPLATIN [Suspect]
     Active Substance: CARBOPLATIN
     Indication: Retinoblastoma
     Dosage: 04 CYCLES.
     Route: 013
  2. TOPOTECAN HYDROCHLORIDE [Suspect]
     Active Substance: TOPOTECAN HYDROCHLORIDE
     Indication: Retinoblastoma
     Dosage: 04 CYCLES
     Route: 013
  3. TOPOTECAN HYDROCHLORIDE [Suspect]
     Active Substance: TOPOTECAN HYDROCHLORIDE
     Dosage: 04 CYCLES
  4. MELPHALAN [Suspect]
     Active Substance: MELPHALAN
     Indication: Retinoblastoma
     Dosage: 04 CYCLES
     Route: 013
  5. MELPHALAN [Suspect]
     Active Substance: MELPHALAN
     Dosage: 04 CYCLES

REACTIONS (4)
  - Central hypothyroidism [Recovered/Resolved]
  - Adrenal insufficiency [Recovered/Resolved]
  - Hypopituitarism [Recovered/Resolved]
  - Off label use [Unknown]
